FAERS Safety Report 25919368 (Version 1)
Quarter: 2025Q4

REPORT INFORMATION
  Report Type: Spontaneous
  Country: US (occurrence: None)
  Receive Date: 20251009
  Receipt Date: 20251009
  Transmission Date: 20260118
  Serious: Yes (Hospitalization)
  Sender: FDA-CTU
  Company Number: None

PATIENT
  Sex: Male
  Weight: 82.35 kg

DRUGS (3)
  1. OPSUMIT [Suspect]
     Active Substance: MACITENTAN
     Indication: Pulmonary arterial hypertension
     Dosage: 10 MG DAILY ORAL
     Route: 048
     Dates: start: 20250503
  2. STERILE DILUENT FOR REMODULIN [Concomitant]
     Active Substance: WATER
  3. REMODULIN [Concomitant]
     Active Substance: TREPROSTINIL

REACTIONS (8)
  - Dyspnoea exertional [None]
  - Gait inability [None]
  - Fatigue [None]
  - Pain in extremity [None]
  - General physical health deterioration [None]
  - Decreased activity [None]
  - Affective disorder [None]
  - Neoplasm [None]
